FAERS Safety Report 24569517 (Version 2)
Quarter: 2024Q4

REPORT INFORMATION
  Report Type: Spontaneous
  Country: BR (occurrence: BR)
  Receive Date: 20241031
  Receipt Date: 20241107
  Transmission Date: 20250115
  Serious: No
  Sender: NOVO NORDISK
  Company Number: BR-NOVOPROD-1306039

PATIENT
  Age: 68 Year
  Sex: Female

DRUGS (3)
  1. RYBELSUS [Suspect]
     Active Substance: SEMAGLUTIDE
     Dosage: 7 MG, FREQUENCY NOT REPORTED
     Route: 058
  2. RYBELSUS [Suspect]
     Active Substance: SEMAGLUTIDE
     Indication: Type 2 diabetes mellitus
     Dosage: 3 MG, FREQUENCY NOT REPORTED
     Route: 058
     Dates: start: 2023, end: 2024
  3. RYBELSUS [Suspect]
     Active Substance: SEMAGLUTIDE
     Dosage: 14 MG, FREQUENCY NOT REPORTED
     Route: 058
     Dates: end: 2024

REACTIONS (1)
  - Hypoglycaemia [Recovered/Resolved]

NARRATIVE: CASE EVENT DATE: 20240101
